FAERS Safety Report 4897728-6 (Version None)
Quarter: 2006Q1

REPORT INFORMATION
  Report Type: 
  Country: None (occurrence: None)
  Receive Date: 20060130
  Receipt Date: 20060130
  Transmission Date: 20060701
  Serious: Yes (Other)
  Sender: FDA-Public Use
  Company Number: None

PATIENT
  Age: 64 Year
  Sex: Female
  Weight: 114.7 kg

DRUGS (30)
  1. GABAPENTIN [Suspect]
  2. OXYCODONE HCL [Concomitant]
  3. ACETAMINOPHEN [Concomitant]
  4. METOPROLOL TARTRATE [Concomitant]
  5. OMEPRAZOLE [Concomitant]
  6. QUETIAPINE FUMARATE [Concomitant]
  7. HYDROCODONE 5/ ACETAMINOPHEN 500MG [Concomitant]
  8. SPIRONOLACTONE [Concomitant]
  9. GABAPENTIN [Concomitant]
  10. OXYCODONE [Concomitant]
  11. CLOTRIMAZOLE 1% [Concomitant]
  12. ACETAMINOPHEN [Concomitant]
  13. SUGARLESS (GUAIFENESIN/DM) COUGH SYRUP [Concomitant]
  14. ERGOCALCIFEROL [Concomitant]
  15. INSULIN REG HUMAN/NOVOLIN R [Concomitant]
  16. GLIPIZIDE [Concomitant]
  17. ASPIRIN [Concomitant]
  18. ALENDRONATE SODIUM [Concomitant]
  19. DOCUSATE/SENNOSIDES [Concomitant]
  20. LIDOCAINE [Concomitant]
  21. SIMVASTATIN [Concomitant]
  22. QUETIAPINE [Concomitant]
  23. OMEPRAZOLE [Concomitant]
  24. METOPROLOL TARTRATE [Concomitant]
  25. FUROSEMIDE [Concomitant]
  26. DIVALPROEX SODIUM [Concomitant]
  27. CALCIUM/VITAMIN D [Concomitant]
  28. ALBUTEROL/IPRATROPIUM MDI [Concomitant]
  29. NITROGLYCERIN TAB SUBLINGUAL [Concomitant]
  30. CITALOPRAM HYDROBROMIDE [Concomitant]

REACTIONS (1)
  - LETHARGY [None]
